FAERS Safety Report 16134042 (Version 2)
Quarter: 2019Q2

REPORT INFORMATION
  Report Type: Spontaneous
  Country: US (occurrence: US)
  Receive Date: 20190329
  Receipt Date: 20190416
  Transmission Date: 20190711
  Serious: No
  Sender: FDA-Public Use
  Company Number: US-HORIZON-KRY-0151-2019

PATIENT
  Age: 45 Year
  Sex: Male

DRUGS (3)
  1. KRYSTEXXA [Suspect]
     Active Substance: PEGLOTICASE
     Indication: GOUT
     Dosage: 8MG IV EVERY 2 WEEKS
     Route: 042
     Dates: start: 20190225, end: 20190311
  2. HYDROCORTISONE. [Concomitant]
     Active Substance: HYDROCORTISONE
  3. BENADRYL [Concomitant]
     Active Substance: DIPHENHYDRAMINE HYDROCHLORIDE

REACTIONS (1)
  - Therapeutic product effect decreased [Unknown]
